FAERS Safety Report 19846918 (Version 1)
Quarter: 2021Q3

REPORT INFORMATION
  Report Type: Spontaneous
  Country: FI (occurrence: FI)
  Receive Date: 20210917
  Receipt Date: 20210917
  Transmission Date: 20211014
  Serious: Yes (Disabling)
  Sender: FDA-Public Use
  Company Number: FI-ROCHE-2907189

PATIENT
  Age: 84 Year
  Sex: Female

DRUGS (12)
  1. KALCIPOS [Concomitant]
     Active Substance: CALCIUM CARBONATE
     Dosage: 500,MG,DAILY
     Route: 048
  2. ROACTEMRA [Suspect]
     Active Substance: TOCILIZUMAB
     Indication: RHEUMATOID ARTHRITIS
     Dosage: 592,MG,MONTHLY
     Route: 042
     Dates: start: 2016
  3. SIMVASTATIN. [Concomitant]
     Active Substance: SIMVASTATIN
     Dosage: 20,MG,DAILY
     Route: 048
  4. DILZEM [Concomitant]
     Active Substance: DILTIAZEM
     Dosage: 180,MG,DAILY
  5. LOSATRIX [Concomitant]
     Active Substance: LOSARTAN POTASSIUM
     Dosage: 100,MG,DAILY
     Route: 048
  6. SERETIDE [Concomitant]
     Active Substance: FLUTICASONE PROPIONATE\SALMETEROL XINAFOATE
  7. TENOX (FINLAND) [Concomitant]
     Dosage: 5,MG,DAILY
     Route: 048
  8. PLAVIX [Concomitant]
     Active Substance: CLOPIDOGREL BISULFATE
     Dosage: 75,MG,DAILY
     Route: 048
  9. HIDRASEC [Concomitant]
     Active Substance: RACECADOTRIL
     Route: 048
  10. PANADOL FORTE [Concomitant]
     Dosage: 3,G,DAILY
     Route: 048
  11. MELATONIN [Concomitant]
     Active Substance: MELATONIN
     Dosage: 3,MG,DAILY
  12. HYDREX SEMI [Concomitant]
     Route: 048

REACTIONS (2)
  - Blister [Not Recovered/Not Resolved]
  - Drug eruption [Not Recovered/Not Resolved]

NARRATIVE: CASE EVENT DATE: 202106
